FAERS Safety Report 21028450 (Version 2)
Quarter: 2022Q3

REPORT INFORMATION
  Report Type: Spontaneous
  Country: CA (occurrence: CA)
  Receive Date: 20220630
  Receipt Date: 20220713
  Transmission Date: 20221027
  Serious: Yes (Other)
  Sender: FDA-Public Use
  Company Number: CA-SANOFI-01162352

PATIENT
  Age: 56 Year
  Sex: Female

DRUGS (8)
  1. FERRLECIT [Suspect]
     Active Substance: SODIUM FERRIC GLUCONATE COMPLEX
     Dosage: UNK
  2. CANDESARTAN [Concomitant]
     Active Substance: CANDESARTAN
  3. METOPROLOL [Concomitant]
     Active Substance: METOPROLOL
  4. NEXIUM [Concomitant]
     Active Substance: ESOMEPRAZOLE MAGNESIUM
  5. HYDROCHLOROTHIAZIDE [Concomitant]
     Active Substance: HYDROCHLOROTHIAZIDE
  6. ZOPICLONE [Concomitant]
     Active Substance: ZOPICLONE
  7. SYNTHROID [Concomitant]
     Active Substance: LEVOTHYROXINE SODIUM
  8. CRESTOR [Concomitant]
     Active Substance: ROSUVASTATIN CALCIUM

REACTIONS (9)
  - Loss of consciousness [Unknown]
  - Pain in extremity [Unknown]
  - Malaise [Unknown]
  - Micturition urgency [Unknown]
  - Flatulence [Unknown]
  - Eructation [Unknown]
  - Lip swelling [Unknown]
  - Swelling of eyelid [Unknown]
  - Chest pain [Unknown]
